FAERS Safety Report 20078414 (Version 2)
Quarter: 2021Q4

REPORT INFORMATION
  Report Type: Other
  Country: US (occurrence: US)
  Receive Date: 20211117
  Receipt Date: 20211223
  Transmission Date: 20220303
  Serious: No
  Sender: FDA-Public Use
  Company Number: US-NEUROCRINE BIOSCIENCES INC.-2021NBI06585

PATIENT

DRUGS (4)
  1. INGREZZA [Suspect]
     Active Substance: VALBENAZINE
     Indication: Tardive dyskinesia
     Dosage: 80 MILLIGRAM, QD
     Route: 048
     Dates: start: 20211021
  2. LOSARTAN [Concomitant]
     Active Substance: LOSARTAN
     Dosage: UNK
  3. TYLENOL PM [Concomitant]
     Active Substance: ACETAMINOPHEN\DIPHENHYDRAMINE
     Indication: Sleep disorder
     Dosage: UNK
  4. MELATONIN [Concomitant]
     Active Substance: MELATONIN
     Indication: Sleep disorder
     Dosage: UNK

REACTIONS (1)
  - Therapeutic product effect decreased [Unknown]

NARRATIVE: CASE EVENT DATE: 20210101
